FAERS Safety Report 7167010-5 (Version None)
Quarter: 2010Q4

REPORT INFORMATION
  Report Type: 
  Country: None (occurrence: None)
  Receive Date: 20101216
  Receipt Date: 20101207
  Transmission Date: 20110411
  Serious: Yes (Hospitalization, Congenital Anomaly)
  Sender: FDA-Public Use
  Company Number: A0899794A

PATIENT
  Sex: Male

DRUGS (4)
  1. PAXIL [Suspect]
     Dates: start: 20010901
  2. PROZAC [Concomitant]
  3. TERBUTALINE SULFATE [Concomitant]
  4. VITAMIN AND MINERAL PRENATAL SUPPLEMENT W/ FOLIC ACID CAP [Concomitant]

REACTIONS (6)
  - CEREBROVASCULAR ACCIDENT [None]
  - CONVULSION [None]
  - DRUG EXPOSURE DURING PREGNANCY [None]
  - DYSMORPHISM [None]
  - GASTROSCHISIS [None]
  - VENTRICULAR SEPTAL DEFECT [None]
